FAERS Safety Report 4595552-5 (Version None)
Quarter: 2005Q1

REPORT INFORMATION
  Report Type: 
  Country: None (occurrence: None)
  Receive Date: 20050224
  Receipt Date: 20050206
  Transmission Date: 20050727
  Serious: Yes (Other)
  Sender: FDA-Public Use
  Company Number: USA050290332

PATIENT

DRUGS (1)
  1. FORTEO [Suspect]

REACTIONS (2)
  - NEPHROLITHIASIS [None]
  - RENAL FAILURE [None]
